FAERS Safety Report 25114686 (Version 2)
Quarter: 2025Q1

REPORT INFORMATION
  Report Type: Spontaneous
  Country: FR (occurrence: FR)
  Receive Date: 20250324
  Receipt Date: 20250331
  Transmission Date: 20250409
  Serious: Yes (Hospitalization, Other)
  Sender: MYLAN
  Company Number: FR-SANDOZ-SDZ2025FR013902

PATIENT
  Age: 41 Year
  Sex: Female

DRUGS (12)
  1. PREGABALIN [Suspect]
     Active Substance: PREGABALIN
     Indication: Fibromyalgia
     Dosage: 900 MILLIGRAM, QD
  2. PREGABALIN [Suspect]
     Active Substance: PREGABALIN
     Dosage: 900 MILLIGRAM, QD
  3. PREGABALIN [Suspect]
     Active Substance: PREGABALIN
     Dosage: 900 MILLIGRAM, QD
     Route: 065
  4. PREGABALIN [Suspect]
     Active Substance: PREGABALIN
     Dosage: 900 MILLIGRAM, QD
     Route: 065
  5. PREGABALIN [Suspect]
     Active Substance: PREGABALIN
     Dosage: 1600 MILLIGRAM, QD
  6. PREGABALIN [Suspect]
     Active Substance: PREGABALIN
     Dosage: 1600 MILLIGRAM, QD
  7. PREGABALIN [Suspect]
     Active Substance: PREGABALIN
     Dosage: 1600 MILLIGRAM, QD
     Route: 065
  8. PREGABALIN [Suspect]
     Active Substance: PREGABALIN
     Dosage: 1600 MILLIGRAM, QD
     Route: 065
  9. PREGABALIN [Suspect]
     Active Substance: PREGABALIN
     Dosage: 1200 MILLIGRAM, QD
  10. PREGABALIN [Suspect]
     Active Substance: PREGABALIN
     Dosage: 1200 MILLIGRAM, QD
     Route: 065
  11. PREGABALIN [Suspect]
     Active Substance: PREGABALIN
     Dosage: 1200 MILLIGRAM, QD
  12. PREGABALIN [Suspect]
     Active Substance: PREGABALIN
     Dosage: 1200 MILLIGRAM, QD
     Route: 065

REACTIONS (4)
  - Drug use disorder [Unknown]
  - Drug dependence [Unknown]
  - Withdrawal syndrome [Unknown]
  - Drug abuse [Unknown]
